FAERS Safety Report 8541641-X (Version None)
Quarter: 2012Q3

REPORT INFORMATION
  Report Type: 
  Country: None (occurrence: None)
  Receive Date: 20120726
  Receipt Date: 20120716
  Transmission Date: 20120928
  Serious: Yes (Hospitalization)
  Sender: FDA-Public Use
  Company Number: US-GLAXOSMITHKLINE-A0978613A

PATIENT
  Age: 50 Year
  Sex: Male
  Weight: 107.7 kg

DRUGS (11)
  1. FLOLAN [Suspect]
     Indication: PULMONARY ARTERIAL HYPERTENSION
     Dosage: 46NGKM CONTINUOUS
     Route: 042
     Dates: start: 20050324
  2. OXYGEN [Concomitant]
  3. CARDIZEM [Concomitant]
  4. REVATIO [Concomitant]
  5. COUMADIN [Concomitant]
  6. INSULIN [Concomitant]
  7. TRICOR [Concomitant]
  8. LASIX [Concomitant]
  9. ATIVAN [Concomitant]
  10. NORVASC [Concomitant]
  11. POTASSIUM CHLORIDE [Concomitant]

REACTIONS (5)
  - VENOUS OCCLUSION [None]
  - DYSPNOEA [None]
  - INFUSION SITE INFECTION [None]
  - OEDEMA PERIPHERAL [None]
  - ARTERIAL STENOSIS [None]
